FAERS Safety Report 6838773-0 (Version None)
Quarter: 2010Q3

REPORT INFORMATION
  Report Type: 
  Country: None (occurrence: None)
  Receive Date: 20100713
  Receipt Date: 20070703
  Transmission Date: 20110219
  Serious: No
  Sender: FDA-Public Use
  Company Number: US-PFIZER INC-2007046289

PATIENT
  Sex: Female
  Weight: 73.2 kg

DRUGS (13)
  1. CHANTIX [Suspect]
     Indication: SMOKING CESSATION THERAPY
     Dates: start: 20070528
  2. LYRICA [Concomitant]
  3. ZETIA [Concomitant]
  4. ATENOLOL [Concomitant]
  5. XANAX [Concomitant]
  6. DARVOCET [Concomitant]
  7. REQUIP [Concomitant]
  8. LEVOTHYROXINE SODIUM [Concomitant]
  9. LOVASTATIN [Concomitant]
  10. LISINOPRIL [Concomitant]
  11. PLAVIX [Concomitant]
  12. ANALGESICS [Concomitant]
  13. FENTANYL [Concomitant]

REACTIONS (9)
  - CHILLS [None]
  - CYSTITIS [None]
  - HYPERHIDROSIS [None]
  - HYPERSOMNIA [None]
  - INSOMNIA [None]
  - NAUSEA [None]
  - PRODUCTIVE COUGH [None]
  - RESTLESSNESS [None]
  - VOMITING [None]
